FAERS Safety Report 6126187-0 (Version None)
Quarter: 2009Q1

REPORT INFORMATION
  Report Type: 
  Country: None (occurrence: None)
  Receive Date: 20090320
  Receipt Date: 20090313
  Transmission Date: 20090719
  Serious: Yes (Hospitalization, Other)
  Sender: FDA-Public Use
  Company Number: B0562916A

PATIENT
  Age: 57 Year
  Sex: Female

DRUGS (4)
  1. WELLBUTRIN [Suspect]
     Indication: DEPRESSION
     Dosage: 300MG PER DAY
     Route: 048
     Dates: start: 20090121, end: 20090122
  2. ANAFRANIL [Suspect]
     Indication: DEPRESSION
     Route: 042
     Dates: start: 20090122, end: 20090122
  3. LUDIOMIL [Concomitant]
     Indication: DRUG USE FOR UNKNOWN INDICATION
     Route: 042
  4. PAROXETINE HCL [Concomitant]
     Indication: DEPRESSION
     Route: 065

REACTIONS (23)
  - ABDOMINAL PAIN UPPER [None]
  - AGITATION [None]
  - ALCOHOL ABUSE [None]
  - AMNESIA [None]
  - ANHEDONIA [None]
  - CEREBRAL ATROPHY [None]
  - COGNITIVE DISORDER [None]
  - COLD SWEAT [None]
  - DEPRESSION [None]
  - DISTURBANCE IN ATTENTION [None]
  - DRUG INTERACTION [None]
  - FEELING HOT [None]
  - GASTRIC ULCER [None]
  - HALLUCINATION, TACTILE [None]
  - HALLUCINATION, VISUAL [None]
  - HOSTILITY [None]
  - LIVER DISORDER [None]
  - PNEUMONIA [None]
  - PSYCHOTIC DISORDER [None]
  - RESTLESSNESS [None]
  - SLEEP DISORDER [None]
  - VOMITING [None]
  - WEIGHT DECREASED [None]
